FAERS Safety Report 12841838 (Version 2)
Quarter: 2016Q4

REPORT INFORMATION
  Report Type: Report from Study
  Country: KR (occurrence: KR)
  Receive Date: 20161012
  Receipt Date: 20161021
  Transmission Date: 20170207
  Serious: Yes (Death, Hospitalization)
  Sender: FDA-Public Use
  Company Number: KR-B.I. PHARMACEUTICALS,INC./RIDGEFIELD-2014-BI-35614BI

PATIENT
  Age: 58 Year
  Sex: Male
  Weight: 47.9 kg

DRUGS (5)
  1. MACPERAN [Concomitant]
     Active Substance: METOCLOPRAMIDE HYDROCHLORIDE
     Indication: DECREASED APPETITE
     Route: 048
     Dates: start: 20140422
  2. AFATINIB [Suspect]
     Active Substance: AFATINIB
     Indication: EGFR GENE MUTATION
     Route: 048
     Dates: start: 20140408, end: 20140421
  3. LOPAMID [Concomitant]
     Indication: DIARRHOEA
     Route: 048
     Dates: start: 20140422
  4. DESOWEN [Concomitant]
     Active Substance: DESONIDE
     Indication: DERMATITIS ACNEIFORM
     Dosage: DAILY DOSE: 2-3 TIMES A DAY
     Route: 061
     Dates: start: 20140422
  5. AFATINIB [Suspect]
     Active Substance: AFATINIB
     Indication: NON-SMALL CELL LUNG CANCER
     Route: 048
     Dates: start: 20140502, end: 20140730

REACTIONS (9)
  - Bradycardia [Unknown]
  - Respiratory failure [Fatal]
  - Malignant neoplasm progression [Fatal]
  - Asthenia [Unknown]
  - Nausea [Unknown]
  - Decreased appetite [Unknown]
  - Vomiting [Unknown]
  - Pleural effusion [Unknown]
  - Dyspnoea [Unknown]

NARRATIVE: CASE EVENT DATE: 20140731
